FAERS Safety Report 7580466-9 (Version None)
Quarter: 2011Q2

REPORT INFORMATION
  Report Type: 
  Country: None (occurrence: None)
  Receive Date: 20110629
  Receipt Date: 20110608
  Transmission Date: 20111010
  Serious: Yes (Death, Hospitalization, Congenital Anomaly)
  Sender: FDA-Public Use
  Company Number: A0921141A

PATIENT
  Sex: Male
  Weight: 3.2 kg

DRUGS (2)
  1. PAXIL [Suspect]
     Route: 064
     Dates: start: 20000526, end: 20020521
  2. PAROXETINE HCL [Suspect]
     Dosage: 20MG PER DAY
     Route: 064
     Dates: start: 20000301, end: 20020101

REACTIONS (13)
  - VENTRICULAR SEPTAL DEFECT [None]
  - CARDIAC ANEURYSM [None]
  - DRUG EXPOSURE DURING PREGNANCY [None]
  - ABDOMINAL TRANSPOSITION [None]
  - CONGENITAL TRICUSPID VALVE ATRESIA [None]
  - CARDIAC PROCEDURE COMPLICATION [None]
  - CARDIAC FAILURE [None]
  - PULMONARY ARTERY STENOSIS CONGENITAL [None]
  - VENTRICULAR HYPOPLASIA [None]
  - PATENT DUCTUS ARTERIOSUS [None]
  - DEXTROCARDIA [None]
  - TRANSPOSITION OF THE GREAT VESSELS [None]
  - ATRIAL SEPTAL DEFECT [None]
